FAERS Safety Report 19092360 (Version 3)
Quarter: 2021Q3

REPORT INFORMATION
  Report Type: Report from Study
  Country: AR (occurrence: AR)
  Receive Date: 20210405
  Receipt Date: 20210925
  Transmission Date: 20211014
  Serious: Yes (Other)
  Sender: FDA-Public Use
  Company Number: PHHY2015AR159546

PATIENT
  Sex: Female

DRUGS (7)
  1. DIOVAN [Suspect]
     Active Substance: VALSARTAN
     Indication: HYPERTENSION
     Dosage: 80 MG, BID, ONE IN MORNING AND ONE AT NIGHT (STARTED 4 YEARS AGO AND STOPPED 2?3 MONTHS AGO)
     Route: 065
  2. DIOVAN [Suspect]
     Active Substance: VALSARTAN
     Dosage: 2 OF 80 MG, QD (THREE YEARS AGO)
     Route: 065
  3. CARVEDILOL. [Concomitant]
     Active Substance: CARVEDILOL
     Indication: PRODUCT USED FOR UNKNOWN INDICATION
     Dosage: UNK
     Route: 065
  4. DIOVAN D [Suspect]
     Active Substance: HYDROCHLOROTHIAZIDE\VALSARTAN
     Indication: PRODUCT USED FOR UNKNOWN INDICATION
     Dosage: UNK
     Route: 065
  5. DIOVAN [Suspect]
     Active Substance: VALSARTAN
     Dosage: 2 OF 160 MG, QD
     Route: 065
     Dates: start: 2011
  6. DIOVAN [Suspect]
     Active Substance: VALSARTAN
     Indication: CARDIAC DISORDER
     Dosage: 160 MG, UNK
     Route: 065
  7. ALPLAX [Concomitant]
     Active Substance: ALPRAZOLAM
     Indication: PRODUCT USED FOR UNKNOWN INDICATION
     Dosage: UNK
     Route: 065

REACTIONS (21)
  - Fear [Unknown]
  - Drug intolerance [Unknown]
  - Mental disorder [Not Recovered/Not Resolved]
  - Nervousness [Unknown]
  - Gait disturbance [Unknown]
  - Blood pressure abnormal [Not Recovered/Not Resolved]
  - Malaise [Unknown]
  - Product use in unapproved indication [Unknown]
  - Peripheral swelling [Not Recovered/Not Resolved]
  - Arrhythmia [Not Recovered/Not Resolved]
  - Dizziness [Not Recovered/Not Resolved]
  - Anger [Unknown]
  - Memory impairment [Unknown]
  - Varicose vein [Unknown]
  - Choking sensation [Unknown]
  - Blood pressure decreased [Unknown]
  - Palpitations [Unknown]
  - Wrong technique in product usage process [Unknown]
  - Intervertebral disc disorder [Unknown]
  - Fatigue [Unknown]
  - Body dysmorphic disorder [Unknown]
